FAERS Safety Report 20581606 (Version 1)
Quarter: 2022Q1

REPORT INFORMATION
  Report Type: Spontaneous
  Country: DE (occurrence: DE)
  Receive Date: 20220311
  Receipt Date: 20220311
  Transmission Date: 20220423
  Serious: Yes (Congenital Anomaly)
  Sender: FDA-Public Use
  Company Number: None

PATIENT
  Sex: Female

DRUGS (4)
  1. ESCITALOPRAM [Suspect]
     Active Substance: ESCITALOPRAM OXALATE
     Dosage: MATERNAL DOSE: 5 MG/D
     Route: 064
     Dates: start: 20190615, end: 20190716
  2. GABAPENTIN [Suspect]
     Active Substance: GABAPENTIN
     Dosage: MATERNAL DOSE: 900 (MG/D (300-0-600 MG))
     Route: 064
     Dates: start: 20190615, end: 20190716
  3. PROGESTERONE [Concomitant]
     Active Substance: PROGESTERONE
     Dosage: MATERNAL DOSE: 200 (MG/D (100-0-100))
     Route: 064
     Dates: start: 20190730, end: 20190801
  4. EUTHYROX [Concomitant]
     Active Substance: LEVOTHYROXINE SODIUM
     Dosage: MATERNAL DOSE: 150 (UG/D (BIS 112 UG/D) )
     Route: 064
     Dates: start: 20190615, end: 20190910

REACTIONS (4)
  - Congenital absence of vertebra [Unknown]
  - Subdural hygroma [Unknown]
  - Gastroschisis [Unknown]
  - Foetal exposure during pregnancy [Unknown]
